FAERS Safety Report 8575768 (Version 2)
Quarter: 2014Q1

REPORT INFORMATION
  Report Type: Spontaneous
  Country: US (occurrence: None)
  Receive Date: 20120323
  Receipt Date: 20130305
  Transmission Date: 20141002
  Serious: Yes (Disabling, Other)
  Sender: FDA-Public Use
  Company Number: 163-21880-11111665

PATIENT
  Age: 79 Year
  Sex: Female

DRUGS (1)
  1. REVLIMID [Suspect]
     Indication: PLASMA CELL MYELOMA
     Dosage: 25 MG, DAILY X 21 DAYS ON, 7 OFF, PO
     Route: 048
     Dates: start: 20110720

REACTIONS (4)
  - Leukopenia [None]
  - Neutropenia [None]
  - Anaemia [None]
  - Asthenia [None]
